FAERS Safety Report 21916495 (Version 2)
Quarter: 2023Q1

REPORT INFORMATION
  Report Type: Spontaneous
  Country: JP (occurrence: JP)
  Receive Date: 20230126
  Receipt Date: 20230306
  Transmission Date: 20230418
  Serious: Yes (Other)
  Sender: FDA-Public Use
  Company Number: JP-BAYER-2023A008236

PATIENT
  Age: 9 Year
  Sex: Female
  Weight: 21 kg

DRUGS (6)
  1. CLARITIN REDITABS [Suspect]
     Active Substance: LORATADINE
     Indication: Mite allergy
     Dosage: 10 MG, QD
     Route: 048
     Dates: start: 20221210
  2. DERMATOPHAGOIDES FARINAE\DERMATOPHAGOIDES PTERONYSSINUS [Suspect]
     Active Substance: DERMATOPHAGOIDES FARINAE\DERMATOPHAGOIDES PTERONYSSINUS
     Indication: Mite allergy
     Dosage: 1 DF, QD
     Route: 060
     Dates: start: 20221210, end: 20221210
  3. LEVOCETIRIZINE HYDROCHLORIDE [Concomitant]
     Active Substance: LEVOCETIRIZINE HYDROCHLORIDE
     Indication: Mite allergy
     Dosage: 2.5 MG, BID
     Route: 048
     Dates: start: 20220711
  4. MONTELUKAST SODIUM [Concomitant]
     Active Substance: MONTELUKAST SODIUM
     Indication: Mite allergy
     Dosage: 5 MG, QD
     Route: 048
     Dates: start: 20221210
  5. CRYPTOMERIA JAPONICA POLLEN [Concomitant]
     Active Substance: CRYPTOMERIA JAPONICA POLLEN
     Dosage: UNK
  6. MITICURE [Concomitant]
     Active Substance: DERMATOPHAGOIDES FARINAE\DERMATOPHAGOIDES PTERONYSSINUS
     Dosage: UNK
     Route: 060
     Dates: start: 2001, end: 20221210

REACTIONS (6)
  - Deafness unilateral [Recovered/Resolved]
  - Ear discomfort [Recovered/Resolved]
  - Vomiting [Recovered/Resolved]
  - Diarrhoea [Recovered/Resolved]
  - Decreased appetite [Recovered/Resolved]
  - Pallor [None]

NARRATIVE: CASE EVENT DATE: 20221211
